FAERS Safety Report 4638974-6 (Version None)
Quarter: 2005Q2

REPORT INFORMATION
  Report Type: 
  Country: None (occurrence: None)
  Receive Date: 20050419
  Receipt Date: 20041214
  Transmission Date: 20051028
  Serious: Yes (Hospitalization, Other)
  Sender: FDA-Public Use
  Company Number: US-MERCK-0412USA01865

PATIENT
  Age: 78 Year
  Sex: Female
  Weight: 73 kg

DRUGS (10)
  1. VIOXX [Suspect]
     Indication: RHEUMATOID ARTHRITIS
     Route: 048
     Dates: start: 20000626, end: 20000910
  2. VIOXX [Suspect]
     Route: 048
     Dates: start: 20000911, end: 20001012
  3. VIOXX [Suspect]
     Route: 048
     Dates: start: 20001013, end: 20001031
  4. VIOXX [Suspect]
     Route: 048
     Dates: start: 20001101, end: 20041010
  5. HUMULIN [Concomitant]
     Route: 065
  6. AVANDIA [Concomitant]
     Route: 065
  7. VASOTEC [Concomitant]
     Route: 065
  8. ACEON [Concomitant]
     Route: 065
  9. ACTOS [Concomitant]
     Route: 065
  10. LANTUS [Concomitant]
     Route: 065

REACTIONS (12)
  - ABDOMINAL PAIN [None]
  - BLOOD CHOLESTEROL INCREASED [None]
  - CEREBROVASCULAR ACCIDENT [None]
  - CHRONIC FATIGUE SYNDROME [None]
  - CONSTIPATION [None]
  - DIVERTICULITIS [None]
  - GASTROENTERITIS [None]
  - INTESTINAL OBSTRUCTION [None]
  - OEDEMA PERIPHERAL [None]
  - PERIPHERAL VASCULAR DISORDER [None]
  - THROMBOSIS [None]
  - THYROID DISORDER [None]
